FAERS Safety Report 5121185-8 (Version None)
Quarter: 2006Q3

REPORT INFORMATION
  Report Type: 
  Country: None (occurrence: None)
  Receive Date: 20060929
  Receipt Date: 20060922
  Transmission Date: 20061208
  Serious: Yes (Other)
  Sender: FDA-Public Use
  Company Number: HQWYE102925SEP06

PATIENT
  Age: 45 Year
  Sex: Female

DRUGS (1)
  1. PREMARIN [Suspect]
     Dates: start: 19900101, end: 20050101

REACTIONS (4)
  - ARTHRITIS [None]
  - AUTOIMMUNE DISORDER [None]
  - BREAST MASS [None]
  - NONSPECIFIC REACTION [None]
